FAERS Safety Report 11867639 (Version 1)
Quarter: 2015Q4

REPORT INFORMATION
  Report Type: Report from Study
  Country: US (occurrence: US)
  Receive Date: 20151224
  Receipt Date: 20151224
  Transmission Date: 20160305
  Serious: Yes (Other)
  Sender: FDA-Public Use
  Company Number: US-AMGEN-USASL2015135514

PATIENT
  Age: 75 Year
  Sex: Female

DRUGS (1)
  1. ENBREL [Suspect]
     Active Substance: ETANERCEPT
     Indication: RHEUMATOID ARTHRITIS
     Dosage: 50 MG, QWK
     Route: 065
     Dates: start: 20051221

REACTIONS (11)
  - Vitamin D decreased [Unknown]
  - Hip fracture [Unknown]
  - Wrist fracture [Unknown]
  - Knee arthroplasty [Unknown]
  - Feeling abnormal [Unknown]
  - Cellulitis [Not Recovered/Not Resolved]
  - Tooth abscess [Unknown]
  - Pain in extremity [Unknown]
  - Fall [Unknown]
  - Ligament sprain [Unknown]
  - Anaemia [Unknown]

NARRATIVE: CASE EVENT DATE: 2012
